FAERS Safety Report 19565435 (Version 1)
Quarter: 2021Q3

REPORT INFORMATION
  Report Type: Spontaneous
  Country: FR (occurrence: FR)
  Receive Date: 20210714
  Receipt Date: 20210714
  Transmission Date: 20211014
  Serious: Yes (Hospitalization)
  Sender: FDA-Public Use
  Company Number: FR-INCYTE CORPORATION-2021IN006169

PATIENT

DRUGS (1)
  1. JAKAVI [Suspect]
     Active Substance: RUXOLITINIB
     Indication: GRAFT VERSUS HOST DISEASE
     Dosage: 15 MG DAILY (10 MG (MORNING) AND 5 MG (EVENING))
     Route: 065
     Dates: start: 202001

REACTIONS (3)
  - Product use issue [Unknown]
  - Squamous cell carcinoma of the tongue [Unknown]
  - Dysphagia [Unknown]

NARRATIVE: CASE EVENT DATE: 2021
